FAERS Safety Report 8491825-4 (Version None)
Quarter: 2012Q3

REPORT INFORMATION
  Report Type: 
  Country: None (occurrence: None)
  Receive Date: 20120706
  Receipt Date: 20110518
  Transmission Date: 20120928
  Serious: No
  Sender: FDA-Public Use
  Company Number: US-GLAXOSMITHKLINE-A0927838A

PATIENT
  Age: 31 Year
  Sex: Female

DRUGS (5)
  1. UNSPECIFIED MEDICATION [Concomitant]
  2. VITAMIN D [Concomitant]
  3. ALBUTEROL [Concomitant]
  4. FISH OIL [Concomitant]
  5. FLOVENT [Suspect]
     Indication: ASTHMA
     Dosage: 1PUFF PER DAY
     Route: 055

REACTIONS (3)
  - WHEEZING [None]
  - DRUG INEFFECTIVE [None]
  - PRODUCT QUALITY ISSUE [None]
